FAERS Safety Report 17555797 (Version 1)
Quarter: 2020Q1

REPORT INFORMATION
  Report Type: Spontaneous
  Country: SE (occurrence: SE)
  Receive Date: 20200318
  Receipt Date: 20200318
  Transmission Date: 20200409
  Serious: Yes (Other)
  Sender: FDA-Public Use
  Company Number: SE-MYLANLABS-2020M1027222

PATIENT
  Sex: Male

DRUGS (2)
  1. OMEPRAZOLE. [Suspect]
     Active Substance: OMEPRAZOLE
     Indication: PRODUCT USED FOR UNKNOWN INDICATION
     Dosage: UNK
     Route: 065
  2. NINTEDANIB [Suspect]
     Active Substance: NINTEDANIB
     Indication: PULMONARY FIBROSIS
     Dosage: 2 DOSAGE FORM, QD(2 DOSAGE FORM, ONCE A DAY)
     Route: 065

REACTIONS (3)
  - Mesenteric vein thrombosis [Recovered/Resolved]
  - Intestinal ischaemia [Recovered/Resolved]
  - Toxicity to various agents [Unknown]
